FAERS Safety Report 25413138 (Version 1)
Quarter: 2025Q2

REPORT INFORMATION
  Report Type: Spontaneous
  Country: US (occurrence: None)
  Receive Date: 20250606
  Receipt Date: 20250606
  Transmission Date: 20250716
  Serious: No
  Sender: FDA-CTU
  Company Number: None

PATIENT

DRUGS (1)
  1. TEZSPIRE [Suspect]
     Active Substance: TEZEPELUMAB-EKKO

REACTIONS (6)
  - Somnolence [None]
  - Bone pain [None]
  - Arthralgia [None]
  - Oxygen saturation decreased [None]
  - Nasal dryness [None]
  - Gait disturbance [None]
